FAERS Safety Report 25014017 (Version 2)
Quarter: 2025Q1

REPORT INFORMATION
  Report Type: Spontaneous
  Country: EG (occurrence: EG)
  Receive Date: 20250226
  Receipt Date: 20250303
  Transmission Date: 20250408
  Serious: Yes (Death, Hospitalization, Other)
  Sender: SANDOZ
  Company Number: EG-SANDOZ-SDZ2025EG012085

PATIENT
  Age: 73 Year
  Sex: Female
  Weight: 75 kg

DRUGS (7)
  1. FULVESTRANT [Suspect]
     Active Substance: FULVESTRANT
     Indication: Breast cancer metastatic
     Dosage: 250 MG, QMO
     Route: 030
     Dates: end: 20250208
  2. KISQALI [Suspect]
     Active Substance: RIBOCICLIB
     Indication: Breast cancer metastatic
     Dosage: 100 MG, QD
     Route: 048
     Dates: start: 2019, end: 20250115
  3. EZETIMIBE\SIMVASTATIN [Suspect]
     Active Substance: EZETIMIBE\SIMVASTATIN
     Indication: Blood cholesterol
     Dosage: UNK, QD
     Route: 048
     Dates: end: 20250208
  4. OSTEOCARE [Suspect]
     Active Substance: CALCIUM\CHOLECALCIFEROL\MAGNESIUM\ZINC
     Indication: Osteoporosis
     Route: 048
  5. VITAMIN D NOS [Suspect]
     Active Substance: CHOLECALCIFEROL\ERGOCALCIFEROL
     Indication: Vitamin D deficiency
     Dosage: 1000 IU, QD
     Route: 048
  6. FILGRASTIM [Suspect]
     Active Substance: FILGRASTIM
     Indication: Immune system disorder
     Route: 042
     Dates: start: 2019, end: 20250208
  7. ZOMETA [Suspect]
     Active Substance: ZOLEDRONIC ACID
     Indication: Breast cancer metastatic
     Route: 042
     Dates: start: 2019, end: 202412

REACTIONS (15)
  - Sepsis [Fatal]
  - Cerebellar haemorrhage [Fatal]
  - Surgery [Recovered/Resolved]
  - Rectal haemorrhage [Recovered/Resolved]
  - Transfusion [Recovered/Resolved]
  - Large intestinal haemorrhage [Recovered/Resolved]
  - Pulmonary oedema [Recovered/Resolved]
  - Immune system disorder [Recovered/Resolved]
  - White blood cell count decreased [Recovered/Resolved]
  - Vitamin D deficiency [Recovered/Resolved]
  - Hemiplegia [Recovered/Resolved]
  - Anaemia [Recovered/Resolved]
  - Dysphagia [Recovered/Resolved]
  - Wrong technique in product usage process [Recovered/Resolved]
  - Incorrect route of product administration [Recovered/Resolved]

NARRATIVE: CASE EVENT DATE: 20241128
